FAERS Safety Report 6375623-3 (Version None)
Quarter: 2009Q3

REPORT INFORMATION
  Report Type: 
  Country: None (occurrence: None)
  Receive Date: 20090917
  Receipt Date: 20090917
  Transmission Date: 20100115
  Serious: Yes (Hospitalization)
  Sender: FDA-Public Use
  Company Number: None

PATIENT
  Age: 20 Year
  Sex: Female
  Weight: 50.8029 kg

DRUGS (1)
  1. YAZ [Suspect]
     Indication: CONTRACEPTION
     Dosage: ONE A DAY PO NIGHTLY
     Route: 048
     Dates: start: 20090805, end: 20090927

REACTIONS (6)
  - CHEST PAIN [None]
  - DEPRESSION [None]
  - HAEMATOCHEZIA [None]
  - HEART RATE INCREASED [None]
  - LUNG DISORDER [None]
  - NAUSEA [None]
